FAERS Safety Report 10159116 (Version 1)
Quarter: 2014Q2

REPORT INFORMATION
  Report Type: Spontaneous
  Country: CH (occurrence: CH)
  Receive Date: 20140508
  Receipt Date: 20140508
  Transmission Date: 20141212
  Serious: Yes (Hospitalization)
  Sender: FDA-Public Use
  Company Number: CH-ROCHE-1394572

PATIENT
  Age: 44 Year
  Sex: Male

DRUGS (17)
  1. RIVOTRIL [Suspect]
     Indication: PRODUCT USED FOR UNKNOWN INDICATION
     Route: 048
     Dates: start: 20140213, end: 20140228
  2. QUETIAPINE [Suspect]
     Indication: PRODUCT USED FOR UNKNOWN INDICATION
     Route: 048
     Dates: start: 20140227, end: 20140228
  3. DEPAKIN [Suspect]
     Indication: BIPOLAR DISORDER
     Route: 048
  4. DEPAKIN [Suspect]
     Route: 048
     Dates: start: 20140130, end: 20140228
  5. LIORESAL [Suspect]
     Indication: PRODUCT USED FOR UNKNOWN INDICATION
     Dosage: 10 MG, DAILY
     Route: 048
     Dates: start: 20140217, end: 20140228
  6. LITHIOFOR [Suspect]
     Indication: BIPOLAR DISORDER
     Route: 048
     Dates: start: 20140207, end: 20140228
  7. LITHIOFOR [Suspect]
     Dosage: BEFORE: 6 IN THE MORNING AND 12 IN THE EVENING
     Route: 048
     Dates: start: 20140210, end: 20140227
  8. ZYPREXA [Suspect]
     Indication: PRODUCT USED FOR UNKNOWN INDICATION
     Route: 048
     Dates: start: 20140203, end: 20140227
  9. ZYPREXA [Suspect]
     Route: 048
     Dates: start: 20140210, end: 20140219
  10. ZYPREXA [Suspect]
     Route: 048
     Dates: start: 20140211
  11. ZYPREXA [Suspect]
     Route: 048
     Dates: start: 20140219
  12. PRAZINE [Suspect]
     Indication: PRODUCT USED FOR UNKNOWN INDICATION
     Route: 048
     Dates: start: 20140219, end: 20140224
  13. PRAZINE [Suspect]
     Route: 048
     Dates: start: 20140224, end: 20140228
  14. MELATONIN [Concomitant]
     Route: 065
     Dates: start: 20140217
  15. CIRCADIN [Concomitant]
     Route: 065
     Dates: start: 20140220, end: 20140228
  16. PRADIF [Concomitant]
     Route: 048
     Dates: start: 20140204, end: 20140227
  17. AKINETON [Concomitant]
     Route: 048
     Dates: start: 20140224, end: 20140228

REACTIONS (1)
  - Altered state of consciousness [Recovered/Resolved]
